FAERS Safety Report 5005138-6 (Version None)
Quarter: 2006Q2

REPORT INFORMATION
  Report Type: 
  Country: None (occurrence: None)
  Receive Date: 20060518
  Receipt Date: 20060510
  Transmission Date: 20061013
  Serious: Yes (Death, Hospitalization)
  Sender: FDA-Public Use
  Company Number: BE-AVENTIS-200615103GDDC

PATIENT
  Sex: Female

DRUGS (1)
  1. KETEK [Suspect]
     Indication: PNEUMONIA
     Dosage: DOSE: UNK

REACTIONS (1)
  - PNEUMONIA [None]
